FAERS Safety Report 5195875-5 (Version None)
Quarter: 2007Q1

REPORT INFORMATION
  Report Type: 
  Country: None (occurrence: None)
  Receive Date: 20070102
  Receipt Date: 20061220
  Transmission Date: 20070707
  Serious: Yes (Death)
  Sender: FDA-Public Use
  Company Number: AU-GLAXOSMITHKLINE-B0446724A

PATIENT
  Age: 55 Year
  Sex: Male
  Weight: 93 kg

DRUGS (7)
  1. AROPAX [Suspect]
     Indication: DEPRESSION
     Dosage: 20MG SEE DOSAGE TEXT
     Route: 065
     Dates: start: 20060101
  2. ZYPREXA [Concomitant]
     Indication: DEPRESSION
     Dosage: 2.5MG PER DAY
     Route: 065
     Dates: start: 20060505
  3. VALIUM [Concomitant]
     Dosage: 5MG SIX TIMES PER DAY
     Route: 065
     Dates: start: 19930101
  4. ENDONE [Concomitant]
     Dosage: 5MG SEVEN TIMES PER DAY
     Route: 065
     Dates: start: 19900101
  5. ACETAMINOPHEN W/ CODEINE [Concomitant]
     Route: 065
     Dates: start: 20040101
  6. IMOVANE [Concomitant]
     Route: 065
  7. KAPANOL [Concomitant]
     Dosage: 20MG AT NIGHT
     Dates: start: 20040101

REACTIONS (12)
  - CARDIOMEGALY [None]
  - CHEST PAIN [None]
  - CHOLELITHIASIS [None]
  - DRUG LEVEL INCREASED [None]
  - DRUG TOXICITY [None]
  - DYSPNOEA [None]
  - NEOPLASM [None]
  - NEUROFIBROMATOSIS [None]
  - PROSTATITIS [None]
  - PYELECTASIA [None]
  - RENAL CYST [None]
  - URINARY TRACT INFECTION [None]
